FAERS Safety Report 21552562 (Version 1)
Quarter: 2022Q4

REPORT INFORMATION
  Report Type: Report from Study
  Country: CN (occurrence: CN)
  Receive Date: 20221104
  Receipt Date: 20221104
  Transmission Date: 20230113
  Serious: Yes (Other)
  Sender: FDA-Public Use
  Company Number: CN-Accord-284554

PATIENT
  Sex: Female

DRUGS (2)
  1. CISPLATIN [Suspect]
     Active Substance: CISPLATIN
     Indication: Endometrial cancer
     Dosage: 75 MG/M2, D1., FOLLOWED BY TWO CYCLES OF DECREASED DOSE OF 50 MG/M2, D1, Q3W
  2. PACLITAXEL [Suspect]
     Active Substance: PACLITAXEL
     Indication: Endometrial cancer
     Dosage: 175 MG/M2, FOLLOWED BY TWO CYCLES DECREASED DOSE 90 MG/M2, D1

REACTIONS (1)
  - Liver injury [Unknown]
